FAERS Safety Report 5803551-8 (Version None)
Quarter: 2008Q3

REPORT INFORMATION
  Report Type: 
  Country: None (occurrence: None)
  Receive Date: 20080708
  Receipt Date: 20080624
  Transmission Date: 20090109
  Serious: Yes (Other)
  Sender: FDA-Public Use
  Company Number: PHEH2007US15502

PATIENT
  Sex: Female

DRUGS (2)
  1. AREDIA [Suspect]
  2. ZOMETA [Suspect]
     Indication: MULTIPLE MYELOMA

REACTIONS (3)
  - FALL [None]
  - HIP FRACTURE [None]
  - IMPAIRED HEALING [None]
